FAERS Safety Report 5227602-7 (Version None)
Quarter: 2007Q1

REPORT INFORMATION
  Report Type: 
  Country: None (occurrence: None)
  Receive Date: 20061201
  Receipt Date: 20061020
  Transmission Date: 20070707
  Serious: No
  Sender: FDA-Public Use
  Company Number: US200610003938

PATIENT
  Sex: Female

DRUGS (4)
  1. CYMBALTA [Suspect]
     Indication: MULTIPLE SCLEROSIS
     Dosage: SEE IMAGE
     Dates: start: 20060101
  2. CYMBALTA [Suspect]
     Dates: start: 20060101
  3. CYMBALTA [Suspect]
     Dates: start: 20060101
  4. CYMBALTA [Suspect]
     Dates: start: 20060101

REACTIONS (4)
  - DEPRESSION [None]
  - DIARRHOEA [None]
  - INFECTION [None]
  - LETHARGY [None]
